FAERS Safety Report 18258472 (Version 1)
Quarter: 2020Q3

REPORT INFORMATION
  Report Type: Other
  Country: US (occurrence: US)
  Receive Date: 20200911
  Receipt Date: 20200911
  Transmission Date: 20201103
  Serious: No
  Sender: FDA-Public Use
  Company Number: US-LEADIANT BIOSCIENCES INC-2019STPI000627

PATIENT

DRUGS (1)
  1. MATULANE [Suspect]
     Active Substance: PROCARBAZINE HYDROCHLORIDE
     Indication: HODGKIN^S DISEASE
     Dosage: 100 MILLIGRAM TWO CAPSULES QD FOR SEVEN DAYS ON A 21 DAY CYCLE
     Route: 048
     Dates: start: 20190801

REACTIONS (1)
  - Skin discolouration [Not Recovered/Not Resolved]
